FAERS Safety Report 15419440 (Version 1)
Quarter: 2018Q4

REPORT INFORMATION
  Report Type: Spontaneous
  Country: US (occurrence: US)
  Receive Date: 20180924
  Receipt Date: 20180924
  Transmission Date: 20190204
  Serious: No
  Sender: FDA-Public Use
  Company Number: US-SA-2018SA261242

PATIENT
  Age: 6 Year
  Sex: Female

DRUGS (1)
  1. ACT ANTICAVITY FLUORIDE RINSE KIDS SCOOBY DOO [Suspect]
     Active Substance: SODIUM FLUORIDE
     Indication: FOOD ALLERGY

REACTIONS (1)
  - Rash [Unknown]
